FAERS Safety Report 5772067-X (Version None)
Quarter: 2008Q2

REPORT INFORMATION
  Report Type: 
  Country: None (occurrence: None)
  Receive Date: 20080613
  Receipt Date: 20080516
  Transmission Date: 20081010
  Serious: Yes (Other)
  Sender: FDA-Public Use
  Company Number: CA-ASTRAZENECA-2008UW09962

PATIENT
  Age: 69 Year
  Sex: Female

DRUGS (2)
  1. SYMBICORT [Suspect]
     Indication: DYSPNOEA
     Dosage: 2 PUFFS BID
     Route: 055
     Dates: start: 20080508, end: 20080513
  2. FEMARA [Concomitant]
     Indication: BREAST CANCER

REACTIONS (5)
  - ANXIETY [None]
  - DEPRESSION [None]
  - HALLUCINATION, VISUAL [None]
  - PALPITATIONS [None]
  - SUICIDAL BEHAVIOUR [None]
